FAERS Safety Report 5604765-2 (Version None)
Quarter: 2008Q1

REPORT INFORMATION
  Report Type: 
  Country: None (occurrence: None)
  Receive Date: 20080128
  Receipt Date: 20080116
  Transmission Date: 20080703
  Serious: Yes (Hospitalization, Disabling, Other)
  Sender: FDA-Public Use
  Company Number: GB-ELI_LILLY_AND_COMPANY-GB200801003566

PATIENT
  Age: 1 Year
  Sex: Male

DRUGS (5)
  1. CEFACLOR [Suspect]
     Dosage: 125 MG, 3/D
     Route: 048
     Dates: start: 20071207, end: 20071211
  2. BECLOMETHASONE DIPROPIONATE [Concomitant]
     Dosage: UNK, UNKNOWN
     Route: 065
  3. PARACETAMOL [Concomitant]
     Dosage: UNK, UNKNOWN
     Route: 065
  4. PIRITON [Concomitant]
     Dosage: UNK, UNKNOWN
     Route: 065
  5. ALBUTEROL [Concomitant]
     Dosage: UNK, UNKNOWN
     Route: 065

REACTIONS (2)
  - ARTHROPATHY [None]
  - ERYTHEMA MULTIFORME [None]
